FAERS Safety Report 19650672 (Version 1)
Quarter: 2021Q3

REPORT INFORMATION
  Report Type: Spontaneous
  Country: CA (occurrence: CA)
  Receive Date: 20210803
  Receipt Date: 20210803
  Transmission Date: 20211014
  Serious: Yes (Life-Threatening, Other)
  Sender: FDA-Public Use
  Company Number: CA-AUROBINDO-AUR-APL-2021-032326

PATIENT
  Age: 74 Year
  Sex: Male

DRUGS (1)
  1. MEROPENEM INJECTION [Suspect]
     Active Substance: MEROPENEM
     Indication: WOUND INFECTION
     Dosage: 500 MILLIGRAM
     Route: 042

REACTIONS (2)
  - Hypotension [Unknown]
  - Drug reaction with eosinophilia and systemic symptoms [Unknown]
